FAERS Safety Report 6362888-7 (Version None)
Quarter: 2009Q3

REPORT INFORMATION
  Report Type: 
  Country: None (occurrence: None)
  Receive Date: 20090919
  Receipt Date: 20090612
  Transmission Date: 20100115
  Serious: No
  Sender: FDA-Public Use
  Company Number: US-ABBOTT-09P-163-0579615-00

PATIENT
  Sex: Female
  Weight: 90.8 kg

DRUGS (1)
  1. HUMIRA [Suspect]
     Indication: PSORIATIC ARTHROPATHY
     Dates: start: 20080501

REACTIONS (2)
  - OROPHARYNGEAL PAIN [None]
  - PYREXIA [None]
